FAERS Safety Report 25246149 (Version 1)
Quarter: 2025Q2

REPORT INFORMATION
  Report Type: Spontaneous
  Country: SG (occurrence: SG)
  Receive Date: 20250428
  Receipt Date: 20250428
  Transmission Date: 20250717
  Serious: Yes (Other)
  Sender: MYLAN
  Company Number: SG-MYLANLABS-2025M1035767

PATIENT
  Age: 69 Year
  Sex: Female

DRUGS (8)
  1. VANCOMYCIN [Suspect]
     Active Substance: VANCOMYCIN
     Indication: Product used for unknown indication
  2. VANCOMYCIN [Suspect]
     Active Substance: VANCOMYCIN
     Route: 065
  3. VANCOMYCIN [Suspect]
     Active Substance: VANCOMYCIN
     Route: 065
  4. VANCOMYCIN [Suspect]
     Active Substance: VANCOMYCIN
  5. AZTREONAM [Suspect]
     Active Substance: AZTREONAM
     Indication: Product used for unknown indication
  6. AZTREONAM [Suspect]
     Active Substance: AZTREONAM
     Route: 065
  7. AZTREONAM [Suspect]
     Active Substance: AZTREONAM
     Route: 065
  8. AZTREONAM [Suspect]
     Active Substance: AZTREONAM

REACTIONS (1)
  - Angioedema [Recovered/Resolved]

NARRATIVE: CASE EVENT DATE: 20250405
